FAERS Safety Report 4849837-5 (Version None)
Quarter: 2005Q4

REPORT INFORMATION
  Report Type: 
  Country: None (occurrence: None)
  Receive Date: 20051115
  Receipt Date: 20050919
  Transmission Date: 20060501
  Serious: No
  Sender: FDA-Public Use
  Company Number: 408837

PATIENT
  Age: 49 Year
  Sex: Female
  Weight: 53.1 kg

DRUGS (4)
  1. PEGASYS [Suspect]
     Indication: HEPATITIS C VIRUS
     Dosage: 180 MCG/1 PER WEEK SUBCUTANEOUS
     Route: 058
     Dates: start: 20050415, end: 20050613
  2. COPEGUS [Suspect]
     Indication: HEPATITIS C VIRUS
     Dosage: 800 MG DAILY ORAL
     Route: 048
     Dates: start: 20050415, end: 20050613
  3. ZOLOFT [Concomitant]
  4. KLONOPIN [Concomitant]

REACTIONS (2)
  - INCREASED TENDENCY TO BRUISE [None]
  - PLATELET COUNT DECREASED [None]
